FAERS Safety Report 24092774 (Version 2)
Quarter: 2024Q3

REPORT INFORMATION
  Report Type: Spontaneous
  Country: US (occurrence: US)
  Receive Date: 20240715
  Receipt Date: 20240731
  Transmission Date: 20241017
  Serious: No
  Sender: PFIZER
  Company Number: US-PFIZER INC-PV202400092036

PATIENT
  Age: 62 Year
  Sex: Female

DRUGS (1)
  1. XELJANZ XR [Suspect]
     Active Substance: TOFACITINIB CITRATE
     Dosage: UNK

REACTIONS (6)
  - Pain in extremity [Unknown]
  - Arthralgia [Unknown]
  - Asthma [Unknown]
  - Hypertension [Unknown]
  - Intervertebral disc protrusion [Unknown]
  - Joint stiffness [Unknown]
